FAERS Safety Report 16327621 (Version 1)
Quarter: 2019Q2

REPORT INFORMATION
  Report Type: Spontaneous
  Country: US (occurrence: US)
  Receive Date: 20190517
  Receipt Date: 20190517
  Transmission Date: 20190711
  Serious: Yes (Other)
  Sender: FDA-Public Use
  Company Number: US-GILEAD-2019-0408023

PATIENT

DRUGS (1)
  1. YESCARTA [Suspect]
     Active Substance: AXICABTAGENE CILOLEUCEL
     Indication: PRODUCT USED FOR UNKNOWN INDICATION
     Dosage: UNK
     Route: 042
     Dates: start: 20190130, end: 20190130

REACTIONS (3)
  - Respiratory syncytial virus infection [Recovered/Resolved]
  - Cytokine release syndrome [Unknown]
  - Disease progression [Unknown]

NARRATIVE: CASE EVENT DATE: 20190131
